FAERS Safety Report 20911663 (Version 3)
Quarter: 2022Q2

REPORT INFORMATION
  Report Type: Spontaneous
  Country: CN (occurrence: CN)
  Receive Date: 20220603
  Receipt Date: 20220628
  Transmission Date: 20220721
  Serious: Yes (Other)
  Sender: FDA-Public Use
  Company Number: CN-BoehringerIngelheim-2022-BI-172835

PATIENT
  Age: 7 Decade
  Sex: Male

DRUGS (2)
  1. ALTEPLASE [Suspect]
     Active Substance: ALTEPLASE
     Indication: Cerebral infarction
     Route: 042
     Dates: start: 20220525, end: 20220525
  2. ALTEPLASE [Suspect]
     Active Substance: ALTEPLASE
     Indication: Thrombolysis

REACTIONS (10)
  - Coma [Unknown]
  - Delirium [Unknown]
  - Glossoptosis [Not Recovered/Not Resolved]
  - Hypersensitivity [Unknown]
  - Aphasia [Not Recovered/Not Resolved]
  - Conjunctival oedema [Recovered/Resolved with Sequelae]
  - Restlessness [Not Recovered/Not Resolved]
  - Retching [Unknown]
  - Muscle strength abnormal [Not Recovered/Not Resolved]
  - Encephalitis [Unknown]

NARRATIVE: CASE EVENT DATE: 20220525
